FAERS Safety Report 8936359 (Version 2)
Quarter: 2012Q4

REPORT INFORMATION
  Report Type: 
  Country: JP (occurrence: JP)
  Receive Date: 20121130
  Receipt Date: 20121218
  Transmission Date: 20130627
  Serious: Yes (Hospitalization, Other)
  Sender: FDA-Public Use
  Company Number: JP-ELI_LILLY_AND_COMPANY-JP201211007926

PATIENT
  Age: 75 Year
  Sex: Male
  Weight: 62.7 kg

DRUGS (8)
  1. GEMZAR [Suspect]
     Indication: PANCREATIC CARCINOMA
     Dosage: 1700 mg/m2, UNK
     Route: 042
     Dates: start: 20121012, end: 20121108
  2. DEPAS [Concomitant]
     Dosage: 1 mg, UNK
     Route: 048
  3. ATELEC [Concomitant]
     Indication: HYPERTENSION
     Dosage: 10 mg, UNK
     Route: 048
     Dates: end: 20121109
  4. HARNAL [Concomitant]
     Dosage: 0.2 mg, UNK
     Route: 048
  5. UBRETID [Concomitant]
     Dosage: 5 mg, UNK
     Route: 048
  6. TAKEPRON [Concomitant]
     Dosage: 30 mg, UNK
     Route: 048
     Dates: end: 20121109
  7. RENIVEZE [Concomitant]
     Indication: HYPERTENSION
     Dosage: 5 mg, UNK
     Route: 048
     Dates: end: 20121109
  8. MIYA-BM [Concomitant]
     Dosage: 3 g, UNK
     Route: 048

REACTIONS (2)
  - Thrombosis [Unknown]
  - Thrombocytopenia [Recovering/Resolving]
